FAERS Safety Report 24824066 (Version 3)
Quarter: 2025Q3

REPORT INFORMATION
  Report Type: Report from Study
  Country: US (occurrence: US)
  Receive Date: 20250109
  Receipt Date: 20250809
  Transmission Date: 20251021
  Serious: Yes (Other)
  Sender: ALEXION PHARMACEUTICALS
  Company Number: US-ALXN-202501USA001274US

PATIENT
  Sex: Male

DRUGS (2)
  1. STRENSIQ [Suspect]
     Active Substance: ASFOTASE ALFA
     Indication: Hypophosphatasia
     Route: 065
  2. GABAPENTIN [Suspect]
     Active Substance: GABAPENTIN
     Route: 065

REACTIONS (11)
  - General physical health deterioration [Unknown]
  - Brain fog [Unknown]
  - Depression [Unknown]
  - Pain [Unknown]
  - Weight increased [Unknown]
  - Suicidal ideation [Unknown]
  - Blood glucose increased [Unknown]
  - Joint swelling [Unknown]
  - Asthenia [Unknown]
  - Dysstasia [Unknown]
  - Fall [Unknown]
